FAERS Safety Report 5633468-3 (Version None)
Quarter: 2008Q1

REPORT INFORMATION
  Report Type: 
  Country: None (occurrence: None)
  Receive Date: 20080221
  Receipt Date: 20080213
  Transmission Date: 20080703
  Serious: Yes (Death, Hospitalization, Other)
  Sender: FDA-Public Use
  Company Number: HK-ELI_LILLY_AND_COMPANY-HK200802003064

PATIENT
  Age: 49 Year
  Sex: Female

DRUGS (3)
  1. CYMBALTA [Suspect]
     Indication: MAJOR DEPRESSION
     Dosage: 30 MG, DAILY (1/D)
     Route: 065
     Dates: start: 20071205, end: 20070101
  2. REMERON [Interacting]
     Indication: MAJOR DEPRESSION
     Dosage: 30 MG, DAILY (1/D)
     Route: 065
     Dates: start: 20070601
  3. REMERON [Interacting]
     Dosage: 45 MG, DAILY (1/D)
     Route: 065
     Dates: start: 20070801

REACTIONS (4)
  - DIZZINESS [None]
  - DRUG INTERACTION [None]
  - PULMONARY HYPERTENSION [None]
  - SEROTONIN SYNDROME [None]
